FAERS Safety Report 6644377-5 (Version None)
Quarter: 2010Q1

REPORT INFORMATION
  Report Type: 
  Country: None (occurrence: None)
  Receive Date: 20100322
  Receipt Date: 20091204
  Transmission Date: 20100710
  Serious: Yes (Hospitalization)
  Sender: FDA-Public Use
  Company Number: US-ROCHE-671861

PATIENT
  Sex: Female
  Weight: 63 kg

DRUGS (15)
  1. BEVACIZUMAB [Suspect]
     Indication: BREAST CANCER
     Dosage: 10 MG/KG, Q2W
     Route: 065
  2. DOXORUBICIN [Suspect]
     Indication: BREAST CANCER
     Dosage: 60 MG/M2, UNK
     Route: 065
  3. DOXORUBICIN [Suspect]
     Route: 065
     Dates: start: 20091125
  4. CYCLOPHOSPHAMIDE [Suspect]
     Indication: BREAST CANCER
     Dosage: 600 MG/M2, UNK
     Route: 065
  5. CYCLOPHOSPHAMIDE [Suspect]
     Dosage: 20 % DOSE REDUCED
     Route: 065
     Dates: start: 20091125
  6. CYCLOPHOSPHAMIDE [Suspect]
     Route: 065
  7. TAXOL [Suspect]
     Indication: BREAST CANCER
     Route: 065
     Dates: start: 20091223
  8. ATIVAN [Concomitant]
     Indication: NAUSEA
     Dosage: AS NECESSARY.INDICATION:ANXIETY, INSOMNIA
     Route: 048
     Dates: start: 20091215
  9. COMPAZINE [Concomitant]
     Route: 048
     Dates: start: 20091215
  10. FERROUS SULFATE TAB [Concomitant]
     Route: 048
     Dates: start: 20091201
  11. DECADRON [Concomitant]
     Route: 048
     Dates: start: 20091125
  12. MIRACLE MOUTHWASH (DIPHENHYDRAMINE HYDROCHLORIDE/GAVISCON/LIDOCAINE) [Concomitant]
     Dosage: DOSE:10 CC.
     Route: 048
     Dates: start: 20091229
  13. NEULASTA [Concomitant]
     Dosage: X 8 CYCLES
     Route: 058
     Dates: start: 20091209
  14. OXYCODONE HCL [Concomitant]
     Dosage: AS NECESSARY WHEN PAIN.
     Route: 048
     Dates: start: 20091229
  15. SYNTHROID [Concomitant]
     Route: 048
     Dates: start: 20091201

REACTIONS (4)
  - FEBRILE NEUTROPENIA [None]
  - HERPES ZOSTER [None]
  - NEUTROPENIA [None]
  - PYREXIA [None]
